FAERS Safety Report 4691792-5 (Version None)
Quarter: 2005Q2

REPORT INFORMATION
  Report Type: 
  Country: None (occurrence: None)
  Receive Date: 20050615
  Receipt Date: 20050615
  Transmission Date: 20051028
  Serious: Yes (Death)
  Sender: FDA-Public Use
  Company Number: None

PATIENT
  Sex: Male
  Weight: 70.91 kg

DRUGS (1)
  1. CETUXIMAB 400MG/M2 IV OVER 2 HOURS FIRST INFUSION THEN 250MG/M2 IV OVE [Suspect]
     Dosage: 400MG/M2 IV OVER 2 HOURS FIRST INFUSION THEN 250MG/M2 IV OVER 1 HOUR WEEKLY
     Route: 042
     Dates: start: 20050526, end: 20050613

REACTIONS (2)
  - DISEASE PROGRESSION [None]
  - INFUSION RELATED REACTION [None]
